FAERS Safety Report 4491619-0 (Version None)
Quarter: 2004Q4

REPORT INFORMATION
  Report Type: 
  Country: None (occurrence: None)
  Receive Date: 20041101
  Receipt Date: 20041019
  Transmission Date: 20050328
  Serious: Yes (Life-Threatening, Hospitalization)
  Sender: FDA-Public Use
  Company Number: A108795

PATIENT
  Age: 77 Year
  Sex: Male
  Weight: 50.7 kg

DRUGS (24)
  1. VORICONAZOLE (VORICONAZOLE) [Suspect]
     Indication: FUNGAL INFECTION
     Dosage: SEE IMAGE
     Dates: start: 20010405, end: 20010411
  2. VORICONAZOLE (VORICONAZOLE) [Suspect]
     Indication: FUNGAL INFECTION
     Dosage: SEE IMAGE
     Dates: start: 20010412, end: 20010417
  3. SALMETEROL XINAFOATE (SALMETEROL XINAFOATE) [Concomitant]
  4. BECLOMETHASONE DIPROPIONATE [Concomitant]
  5. FUROSEMIDE [Concomitant]
  6. PREDNISOLONE [Concomitant]
  7. ENOXAPARIN SODIUM [Concomitant]
  8. CEFTAZIDIME SODIUM [Concomitant]
  9. METRONIDAZOLE [Concomitant]
  10. GENTAMICIN [Concomitant]
  11. CIPROFLOXACIN [Concomitant]
  12. MEROPENEM (MEROPENEM) [Concomitant]
  13. ITRACONAZOLE [Concomitant]
  14. ETIDRONATE DISODIUM [Concomitant]
  15. TEICOPLANIN (TEICOPLANIN) [Concomitant]
  16. FLUOXETINE [Concomitant]
  17. MUPIROCIN (MUPIROCIN) [Concomitant]
  18. CHLORHEXIDINE (CHLORHEXIDINE) [Concomitant]
  19. HEXACHLOROPHENE (HEXACHLOROPHENE) [Concomitant]
  20. AMILORIDE (AMILORIDE) [Concomitant]
  21. ZINC SULFATE (ZINC SULFATE) [Concomitant]
  22. PROCHLORPERAZINE [Concomitant]
  23. ZOPICLONE (ZOPICLONE) [Concomitant]
  24. ZOLPIDEM TARTRATE [Concomitant]

REACTIONS (32)
  - ADRENAL INSUFFICIENCY [None]
  - ALANINE AMINOTRANSFERASE DECREASED [None]
  - ALANINE AMINOTRANSFERASE INCREASED [None]
  - BLOOD ALKALINE PHOSPHATASE INCREASED [None]
  - BLOOD CORTISOL INCREASED [None]
  - BLOOD GLUCOSE INCREASED [None]
  - BLOOD OSMOLARITY DECREASED [None]
  - BLOOD THYROID STIMULATING HORMONE DECREASED [None]
  - BUNDLE BRANCH BLOCK RIGHT [None]
  - CIRCULATORY COLLAPSE [None]
  - COMA [None]
  - CONSCIOUSNESS FLUCTUATING [None]
  - DILATATION ATRIAL [None]
  - DIZZINESS [None]
  - DRUG TOXICITY [None]
  - ELECTROCARDIOGRAM QRS COMPLEX PROLONGED [None]
  - ELECTROLYTE IMBALANCE [None]
  - GAMMA-GLUTAMYLTRANSFERASE INCREASED [None]
  - HYPERKALAEMIA [None]
  - HYPOGLYCAEMIA [None]
  - HYPONATRAEMIA [None]
  - HYPOTENSION [None]
  - HYPOVOLAEMIA [None]
  - LUNG DISORDER [None]
  - MENTAL STATUS CHANGES [None]
  - MINERAL DEFICIENCY [None]
  - MYOCARDIAL ISCHAEMIA [None]
  - QRS AXIS ABNORMAL [None]
  - RESPIRATORY ACIDOSIS [None]
  - SINUS ARRHYTHMIA [None]
  - SUPRAVENTRICULAR EXTRASYSTOLES [None]
  - URINE SODIUM INCREASED [None]
